FAERS Safety Report 13928772 (Version 1)
Quarter: 2017Q3

REPORT INFORMATION
  Report Type: Spontaneous
  Country: US (occurrence: None)
  Receive Date: 20170901
  Receipt Date: 20170901
  Transmission Date: 20171127
  Serious: Yes (Life-Threatening, Hospitalization, Disabling)
  Sender: FDA-Public Use
  Company Number: None

PATIENT
  Sex: Female
  Weight: 85.28 kg

DRUGS (6)
  1. THIOTHIXENE HCL 2MG CAP [Suspect]
     Active Substance: THIOTHIXENE HYDROCHLORIDE
     Indication: BIPOLAR DISORDER
     Dosage: 1 PILL ONCE MOUTH
     Route: 048
     Dates: start: 2013, end: 2014
  2. VITAMIN D [Concomitant]
     Active Substance: CHOLECALCIFEROL
  3. LITHIUM. [Concomitant]
     Active Substance: LITHIUM
  4. SYNTHROID [Concomitant]
     Active Substance: LEVOTHYROXINE SODIUM
  5. GABAPENTIN ORAL CAP [Suspect]
     Active Substance: GABAPENTIN
     Dates: start: 201508
  6. PACEMAKER [Concomitant]

REACTIONS (9)
  - Product substitution issue [None]
  - Mouth haemorrhage [None]
  - Tooth fracture [None]
  - Oral herpes [None]
  - Peripheral swelling [None]
  - Dyspnoea [None]
  - Gingival pain [None]
  - Fall [None]
  - Parkinsonism [None]
